FAERS Safety Report 11007042 (Version 1)
Quarter: 2015Q2

REPORT INFORMATION
  Report Type: Spontaneous
  Country: US (occurrence: US)
  Receive Date: 20150409
  Receipt Date: 20150409
  Transmission Date: 20150821
  Serious: No
  Sender: FDA-Public Use
  Company Number: US-ALLERGAN-1502614US

PATIENT
  Age: 37 Year
  Sex: Female

DRUGS (2)
  1. LEXAPRO [Concomitant]
     Active Substance: ESCITALOPRAM OXALATE
     Dosage: UNK
  2. LATISSE [Suspect]
     Active Substance: BIMATOPROST
     Indication: GROWTH OF EYELASHES
     Dosage: 1 GTT, QD
     Route: 061
     Dates: start: 201404

REACTIONS (7)
  - Incorrect dose administered [Unknown]
  - Eye irritation [Unknown]
  - Dry eye [Not Recovered/Not Resolved]
  - Eye discharge [Unknown]
  - Wrong technique in drug usage process [Unknown]
  - Ocular hyperaemia [Unknown]
  - Lacrimation increased [Unknown]
